FAERS Safety Report 8107683-3 (Version None)
Quarter: 2012Q1

REPORT INFORMATION
  Report Type: 
  Country: None (occurrence: None)
  Receive Date: 20120202
  Receipt Date: 20120123
  Transmission Date: 20120608
  Serious: Yes (Hospitalization, Other)
  Sender: FDA-Public Use
  Company Number: US-BAXTER-2012BH002341

PATIENT
  Sex: Male

DRUGS (1)
  1. DIANEAL [Suspect]
     Indication: PERITONEAL DIALYSIS
     Route: 033

REACTIONS (4)
  - BLOOD GLUCOSE ABNORMAL [None]
  - PERITONITIS BACTERIAL [None]
  - LOSS OF CONSCIOUSNESS [None]
  - PERITONEAL DIALYSIS COMPLICATION [None]
